FAERS Safety Report 6959681-0 (Version None)
Quarter: 2010Q3

REPORT INFORMATION
  Report Type: 
  Country: None (occurrence: None)
  Receive Date: 20100901
  Receipt Date: 20100827
  Transmission Date: 20110219
  Serious: Yes (Other)
  Sender: FDA-Public Use
  Company Number: US-ASTRAZENECA-2008UW04311

PATIENT
  Age: 24816 Day
  Sex: Female
  Weight: 136.1 kg

DRUGS (20)
  1. SEROQUEL [Suspect]
     Indication: DEPRESSION
     Route: 048
     Dates: start: 19980101
  2. SEROQUEL [Suspect]
     Indication: BIPOLAR DISORDER
     Route: 048
     Dates: start: 19980101
  3. SEROQUEL [Suspect]
     Indication: SCHIZOPHRENIA
     Route: 048
     Dates: start: 19980101
  4. SEROQUEL [Suspect]
     Indication: ANXIETY
     Route: 048
     Dates: start: 19980101
  5. SEROQUEL [Suspect]
     Dosage: 100 MG- 200 MG
     Route: 048
     Dates: start: 20030408
  6. SEROQUEL [Suspect]
     Dosage: 100 MG- 200 MG
     Route: 048
     Dates: start: 20030408
  7. SEROQUEL [Suspect]
     Dosage: 100 MG- 200 MG
     Route: 048
     Dates: start: 20030408
  8. SEROQUEL [Suspect]
     Dosage: 100 MG- 200 MG
     Route: 048
     Dates: start: 20030408
  9. HYDROCODONE BITARTRATE AND ACETAMINOPHEN [Concomitant]
     Dosage: 10-500 UNITS
  10. METFORMIN HCL [Concomitant]
  11. DIPHENHYDRAMINE HCL [Concomitant]
  12. METOCLOPRAMIDE [Concomitant]
  13. HYDROCHLOROTHIAZIDE [Concomitant]
     Dosage: 25 UNITS
  14. GLIPIZIDE [Concomitant]
  15. LORTAB [Concomitant]
  16. WELLBUTRIN [Concomitant]
  17. NAPROXEN [Concomitant]
  18. CYCLOBENZAPRINE [Concomitant]
  19. HYDROXYZINE EMBONATE [Concomitant]
  20. HALDOL [Concomitant]

REACTIONS (6)
  - DIABETES MELLITUS [None]
  - DIABETIC COMA [None]
  - DIABETIC COMPLICATION [None]
  - DIABETIC KETOACIDOSIS [None]
  - DIABETIC RETINOPATHY [None]
  - TYPE 2 DIABETES MELLITUS [None]
